FAERS Safety Report 18925667 (Version 2)
Quarter: 2021Q1

REPORT INFORMATION
  Report Type: Spontaneous
  Country: NL (occurrence: NL)
  Receive Date: 20210223
  Receipt Date: 20210224
  Transmission Date: 20210420
  Serious: Yes (Death)
  Sender: FDA-Public Use
  Company Number: NL-TEVA-2021-NL-1881488

PATIENT
  Age: 90 Year
  Sex: Female
  Weight: 56 kg

DRUGS (5)
  1. PARACETAMOL ZETPIL 1000MG / BRAND NAME NOT SPECIFIED [Suspect]
     Active Substance: ACETAMINOPHEN
     Indication: ILEUS
     Dosage: 4000 MILLIGRAM DAILY; 1000MG 4X DAILY; THERAPY END DATE: ASKED BUT UNKNOWN
     Route: 065
     Dates: start: 20210125
  2. MORFINE INJVLST 10MG/ML / BRAND NAME NOT SPECIFIED [Suspect]
     Active Substance: MORPHINE
     Indication: ILEUS
     Dosage: INJECTION LIQUID, 10 MG / ML (MILLIGRAMS PER MILLILITER); 1 DF, THERAPY END DATE: ASKED BUT UNKNOWN
     Dates: start: 20210125
  3. MORFINE INJVLST 10MG/ML / BRAND NAME NOT SPECIFIED [Suspect]
     Active Substance: MORPHINE
     Indication: PNEUMONIA
  4. PFIZER?BIONTECH COVID?19 VACCINE [Suspect]
     Active Substance: TOZINAMERAN
     Indication: COVID-19 IMMUNISATION
     Dosage: 1 DF; THERAPY END DATE: ASKED BUT UNKNOWN
     Dates: start: 20210127
  5. MIDAZOLAM INJVLST 5MG/ML / BRAND NAME NOT SPECIFIED [Suspect]
     Active Substance: MIDAZOLAM
     Indication: PALLIATIVE CARE
     Dosage: 6X DAILY 10MG, UNIT DOSE: 10 MG; THERAPY END DATE: ASKED BUT UNKNOWN
     Dates: start: 20210127

REACTIONS (1)
  - Death [Fatal]

NARRATIVE: CASE EVENT DATE: 20210202
